FAERS Safety Report 7126455-X (Version None)
Quarter: 2010Q4

REPORT INFORMATION
  Report Type: 
  Country: None (occurrence: None)
  Receive Date: 20101115
  Receipt Date: 20101108
  Transmission Date: 20110411
  Serious: Yes (Hospitalization)
  Sender: FDA-Public Use
  Company Number: 2009AC000204

PATIENT
  Age: 78 Year
  Sex: Female
  Weight: 52.1637 kg

DRUGS (29)
  1. DIGOXIN [Suspect]
     Indication: ARRHYTHMIA
     Dosage: 0.25 MG;QD;PO
     Route: 048
     Dates: start: 20080103, end: 20080308
  2. DIGOXIN [Suspect]
     Dosage: 0.125 MG;QOD;PO
     Route: 048
     Dates: start: 20080207
  3. ZOFRAN [Concomitant]
  4. COLCHICINE [Concomitant]
  5. PROMETHAZINE [Concomitant]
  6. CARVEDILOL [Concomitant]
  7. ALLOPURINOL [Concomitant]
  8. LASIX [Concomitant]
  9. WARFARIN SODIUM [Concomitant]
  10. POTASSIUM CHLORIDE [Concomitant]
  11. PREDNISONE [Concomitant]
  12. LYRICA [Concomitant]
  13. LEVOPHED [Concomitant]
  14. RESTORIL [Concomitant]
  15. METOCLOPRAMIDE [Concomitant]
  16. IMODIUM [Concomitant]
  17. TUMS [Concomitant]
  18. VITAMIN D [Concomitant]
  19. AMITRIPTYLINE [Concomitant]
  20. PANTOPRAZOLE [Concomitant]
  21. COUMADIN [Concomitant]
  22. ALLOPURINOL [Concomitant]
  23. PLAQUENIL [Concomitant]
  24. TRAMADOL [Concomitant]
  25. . [Concomitant]
  26. . [Concomitant]
  27. FOSAMAX [Concomitant]
  28. VITAMIN D [Concomitant]
  29. CALCIUM [Concomitant]

REACTIONS (21)
  - ASTHENIA [None]
  - ATRIAL FIBRILLATION [None]
  - BRADYCARDIA [None]
  - CARDIAC MURMUR [None]
  - CARDIOMYOPATHY [None]
  - DECREASED APPETITE [None]
  - DEHYDRATION [None]
  - DIABETES MELLITUS INADEQUATE CONTROL [None]
  - DIARRHOEA [None]
  - ECONOMIC PROBLEM [None]
  - GASTROINTESTINAL DISORDER [None]
  - GOUTY ARTHRITIS [None]
  - HYPOPHAGIA [None]
  - MITRAL VALVE INCOMPETENCE [None]
  - MULTIPLE INJURIES [None]
  - NAUSEA [None]
  - POOR QUALITY SLEEP [None]
  - RETCHING [None]
  - THERAPEUTIC AGENT TOXICITY [None]
  - VOMITING [None]
  - WEIGHT DECREASED [None]
